FAERS Safety Report 8422333-4 (Version None)
Quarter: 2012Q2

REPORT INFORMATION
  Report Type: 
  Country: None (occurrence: None)
  Receive Date: 20120608
  Receipt Date: 20120605
  Transmission Date: 20120825
  Serious: Yes (Other)
  Sender: FDA-Public Use
  Company Number: US-AMGEN-USASP2012035122

PATIENT
  Age: 61 Year
  Sex: Male

DRUGS (1)
  1. ENBREL [Suspect]
     Indication: RHEUMATOID ARTHRITIS
     Dosage: 50 MG, QWK
     Dates: start: 20120404, end: 20120523

REACTIONS (8)
  - OXYGEN SATURATION DECREASED [None]
  - PYREXIA [None]
  - COUGH [None]
  - NASAL CONGESTION [None]
  - DRUG INEFFECTIVE [None]
  - WHITE BLOOD CELL COUNT INCREASED [None]
  - DYSPNOEA [None]
  - LUNG DISORDER [None]
